FAERS Safety Report 5304209-4 (Version None)
Quarter: 2007Q2

REPORT INFORMATION
  Report Type: 
  Country: None (occurrence: None)
  Receive Date: 20070423
  Receipt Date: 20070411
  Transmission Date: 20071010
  Serious: Yes (Other)
  Sender: FDA-Public Use
  Company Number: US-JNJFOC-20070402474

PATIENT
  Age: 2 Month
  Sex: Male
  Weight: 4.99 kg

DRUGS (5)
  1. CONCENTRATED TYLENOL INFANTS GRAPE [Suspect]
  2. CONCENTRATED TYLENOL INFANTS GRAPE [Suspect]
     Indication: INJECTION SITE PAIN
  3. INFANTS MYLICON [Suspect]
  4. INFANTS MYLICON [Suspect]
     Indication: FLATULENCE
  5. VACCINATION [Concomitant]
     Indication: PROPHYLAXIS

REACTIONS (1)
  - HAEMATOCHEZIA [None]
